FAERS Safety Report 5063236-5 (Version None)
Quarter: 2006Q3

REPORT INFORMATION
  Report Type: 
  Country: None (occurrence: None)
  Receive Date: 20060703
  Receipt Date: 20060427
  Transmission Date: 20061208
  Serious: No
  Sender: FDA-Public Use
  Company Number: 2006PV012864

PATIENT
  Age: 35 Year
  Sex: Female
  Weight: 118.3888 kg

DRUGS (2)
  1. SYMLIN [Suspect]
     Indication: DIABETES MELLITUS INSULIN-DEPENDENT
     Dosage: 30 MCG; TID; SC
     Route: 058
     Dates: start: 20060417
  2. HUMULIN [Concomitant]

REACTIONS (3)
  - CHEST DISCOMFORT [None]
  - CHEST PAIN [None]
  - COUGH [None]
